FAERS Safety Report 11240300 (Version 2)
Quarter: 2015Q3

REPORT INFORMATION
  Report Type: Spontaneous
  Country: DZ (occurrence: DZ)
  Receive Date: 20150706
  Receipt Date: 20150719
  Transmission Date: 20151125
  Serious: Yes (Death)
  Sender: FDA-Public Use
  Company Number: DZ-ABBVIE-15P-003-1420514-00

PATIENT

DRUGS (1)
  1. HUMIRA [Suspect]
     Active Substance: ADALIMUMAB
     Indication: EXPOSURE VIA BODY FLUID
     Route: 050

REACTIONS (4)
  - Stillbirth [Fatal]
  - Foetal exposure during pregnancy [Unknown]
  - Brain malformation [Fatal]
  - Paternal drugs affecting foetus [Unknown]
